FAERS Safety Report 19025427 (Version 1)
Quarter: 2021Q1

REPORT INFORMATION
  Report Type: Spontaneous
  Country: HU (occurrence: HU)
  Receive Date: 20210318
  Receipt Date: 20210318
  Transmission Date: 20210420
  Serious: Yes (Hospitalization, Other)
  Sender: FDA-Public Use
  Company Number: NVSC2021HU054030

PATIENT
  Age: 32 Year
  Sex: Male

DRUGS (3)
  1. ANTITHYMOCYTE IMMUNOGLOBULIN [Concomitant]
     Active Substance: THYMOCYTE IMMUNE GLOBULIN NOS
     Indication: APLASTIC ANAEMIA
     Dosage: 250 MG, QD
     Route: 065
     Dates: start: 20170113, end: 20170117
  2. CICLOSPORIN [Suspect]
     Active Substance: CYCLOSPORINE
     Indication: APLASTIC ANAEMIA
     Dosage: UNK
     Route: 065
     Dates: start: 20170113, end: 20170117
  3. ELTROMBOPAG [Suspect]
     Active Substance: ELTROMBOPAG
     Indication: PRODUCT USED FOR UNKNOWN INDICATION
     Dosage: 150 MG, UNKNOWN
     Route: 065

REACTIONS (7)
  - Infection [Unknown]
  - Neutropenia [Recovering/Resolving]
  - Platelet count decreased [Recovered/Resolved]
  - Haemoptysis [Unknown]
  - Product use in unapproved indication [Unknown]
  - Drug ineffective [Recovered/Resolved]
  - Haemorrhage [Unknown]
